FAERS Safety Report 14542783 (Version 1)
Quarter: 2018Q1

REPORT INFORMATION
  Report Type: Report from Study
  Country: FR (occurrence: FR)
  Receive Date: 20180216
  Receipt Date: 20180216
  Transmission Date: 20180509
  Serious: Yes (Hospitalization)
  Sender: FDA-Public Use
  Company Number: FR-JNJFOC-20180206701

PATIENT
  Age: 61 Year
  Sex: Male
  Weight: 86 kg

DRUGS (9)
  1. STELARA [Suspect]
     Active Substance: USTEKINUMAB
     Indication: PSORIASIS
     Dosage: WEEK 4
     Route: 058
     Dates: start: 20170802, end: 20170902
  2. ADENURIC [Concomitant]
     Active Substance: FEBUXOSTAT
     Route: 065
     Dates: start: 2014
  3. ELISOR [Concomitant]
     Active Substance: PRAVASTATIN SODIUM
     Route: 065
     Dates: start: 2001
  4. APIDRA [Concomitant]
     Active Substance: INSULIN GLULISINE
     Route: 065
     Dates: start: 20171222
  5. LEVEMIR [Concomitant]
     Active Substance: INSULIN DETEMIR
     Route: 065
     Dates: start: 20171222
  6. METFORMIN [Concomitant]
     Active Substance: METFORMIN HYDROCHLORIDE
     Route: 065
     Dates: start: 2011
  7. APROVEL [Concomitant]
     Active Substance: IRBESARTAN
     Route: 065
  8. STELARA [Suspect]
     Active Substance: USTEKINUMAB
     Indication: PSORIASIS
     Route: 058
     Dates: start: 20170902, end: 20180205
  9. LUMIGAN [Concomitant]
     Active Substance: BIMATOPROST
     Route: 065
     Dates: start: 20170918

REACTIONS (7)
  - Acute kidney injury [Unknown]
  - Urinary tract infection enterococcal [Unknown]
  - Obstructive pancreatitis [Not Recovered/Not Resolved]
  - Portal hypertension [Unknown]
  - Hepatocellular injury [Unknown]
  - Pneumonia [Unknown]
  - Cholelithiasis [Unknown]

NARRATIVE: CASE EVENT DATE: 20171206
